FAERS Safety Report 7558897-2 (Version None)
Quarter: 2011Q2

REPORT INFORMATION
  Report Type: 
  Country: None (occurrence: None)
  Receive Date: 20110613
  Receipt Date: 20110530
  Transmission Date: 20111010
  Serious: Yes (Hospitalization)
  Sender: FDA-Public Use
  Company Number: 1000020643

PATIENT
  Age: 78 Year
  Sex: Male

DRUGS (9)
  1. CARDEBSIEL (BISOPROLOL FUMARATE) (BISOPROLOL FUMARATE) [Concomitant]
  2. PLAVIX [Concomitant]
  3. NOVOMIX (BIPHASIC INSULIN ASPART) (BIPHASIC INSULIN ASPART) [Concomitant]
  4. CITALOPRAM HYDROBROMIDE [Suspect]
     Dosage: 10 MG (10 MG, 1 IN 1 D), ORAL
     Route: 048
     Dates: start: 20110324, end: 20110326
  5. NOVORAPID INSULIN (INSULIN ASPART) (INSULIN ASPART) [Concomitant]
  6. CITALOPRAM HYDROBROMIDE [Suspect]
     Dosage: 10 MG (10 MG, 1 IN 1 D), ORAL
     Route: 048
     Dates: start: 20110328, end: 20110329
  7. AMOXICILLIN [Suspect]
     Indication: BACTERIAL PROSTATITIS
     Dosage: 1 GRAM (1 GM, 1 IN 1 D), INTRAVENOUS (NOT OTHERWISE SPECIFIED)
     Dates: start: 20110326, end: 20110329
  8. TARDYFERON (FERROUS SULFATEO( (FERROUS SULFATE) [Concomitant]
  9. CEFOTAXIME (CEFOTAXMINE) [Concomitant]

REACTIONS (7)
  - CYTOLYTIC HEPATITIS [None]
  - BRONCHIAL OBSTRUCTION [None]
  - CAROTID ARTERY STENOSIS [None]
  - HYPERKALAEMIA [None]
  - CULTURE URINE POSITIVE [None]
  - HYPONATRAEMIA [None]
  - BACTERIAL TEST POSITIVE [None]
